FAERS Safety Report 24285656 (Version 1)
Quarter: 2024Q3

REPORT INFORMATION
  Report Type: Spontaneous
  Country: US (occurrence: None)
  Receive Date: 20240902
  Receipt Date: 20240902
  Transmission Date: 20241017
  Serious: No
  Sender: Public
  Company Number: None

PATIENT
  Sex: Female

DRUGS (3)
  1. PROLIA [Suspect]
     Active Substance: DENOSUMAB
     Indication: Product used for unknown indication
     Dosage: OTHER FREQUENCY : EVERY 6 MONTHS;?
     Route: 058
     Dates: start: 202404
  2. VYNDAMAX [Concomitant]
     Indication: Cardiomyopathy
  3. VYNDAMAX [Concomitant]
     Indication: Amyloidosis

REACTIONS (3)
  - Fungal infection [None]
  - Chills [None]
  - Tremor [None]
